FAERS Safety Report 9342309 (Version 2)
Quarter: 2013Q3

REPORT INFORMATION
  Report Type: Report from Study
  Country: ES (occurrence: ES)
  Receive Date: 20130611
  Receipt Date: 20130724
  Transmission Date: 20140515
  Serious: Yes (Hospitalization)
  Sender: FDA-Public Use
  Company Number: ES-ELI_LILLY_AND_COMPANY-ES201305008589

PATIENT
  Age: 63 Year
  Sex: Male
  Weight: 75 kg

DRUGS (7)
  1. TGFB RI KINASE INHIBITOR (LY2157299) [Suspect]
     Indication: PANCREATIC CARCINOMA
     Dosage: UNK
     Route: 048
     Dates: start: 20130313, end: 20130521
  2. TGFB RI KINASE INHIBITOR (LY2157299) [Suspect]
     Dosage: UNK
     Dates: start: 20130606
  3. GEMCITABINE HYDROCHLORIDE [Suspect]
     Indication: PANCREATIC CARCINOMA
     Dosage: 1000 MG/M2, UNK
     Route: 042
     Dates: start: 20130320, end: 20130522
  4. GEMCITABINE HYDROCHLORIDE [Suspect]
     Dosage: UNK
     Dates: start: 20130606
  5. ENALAPRIL [Concomitant]
     Indication: HYPERTENSION
     Dosage: UNK
     Dates: start: 201202
  6. ESIDREX [Concomitant]
     Indication: HYPERTENSION
     Dosage: UNK
     Dates: start: 201204
  7. OMEPRAZOL [Concomitant]
     Indication: PROPHYLAXIS
     Dosage: UNK

REACTIONS (2)
  - Lung infection [Recovered/Resolved]
  - Pyrexia [Recovered/Resolved]
